FAERS Safety Report 8250951-5 (Version None)
Quarter: 2012Q2

REPORT INFORMATION
  Report Type: 
  Country: None (occurrence: None)
  Receive Date: 20120402
  Receipt Date: 20120329
  Transmission Date: 20120825
  Serious: Yes (Life-Threatening, Hospitalization)
  Sender: FDA-Public Use
  Company Number: DE-ASTRAZENECA-2012SE05811

PATIENT
  Age: 7215 Day
  Sex: Male

DRUGS (1)
  1. SEROQUEL [Suspect]
     Dosage: 12 G ONCE
     Route: 048
     Dates: start: 20111107, end: 20111107

REACTIONS (6)
  - HYPOTONIA [None]
  - INTENTIONAL OVERDOSE [None]
  - SUICIDE ATTEMPT [None]
  - COMA [None]
  - PNEUMONIA [None]
  - CARDIOPULMONARY FAILURE [None]
